FAERS Safety Report 20749260 (Version 10)
Quarter: 2023Q4

REPORT INFORMATION
  Report Type: Spontaneous
  Country: FR (occurrence: FR)
  Receive Date: 20220426
  Receipt Date: 20231219
  Transmission Date: 20240110
  Serious: Yes (Death, Life-Threatening, Other)
  Sender: FDA-Public Use
  Company Number: FR-002147023-NVSC2022FR082786

PATIENT
  Age: 11 Month
  Sex: Male

DRUGS (2)
  1. TRAMADOL [Suspect]
     Active Substance: TRAMADOL\TRAMADOL HYDROCHLORIDE
     Indication: Product used for unknown indication
     Dosage: UNK (60 TO 90 ML CONSUMED BY THE INFANT)
     Route: 048
  2. TRAMADOL [Suspect]
     Active Substance: TRAMADOL\TRAMADOL HYDROCHLORIDE
     Dosage: UNK
     Route: 064

REACTIONS (17)
  - Coma [Fatal]
  - Seizure [Fatal]
  - Acute respiratory distress syndrome [Fatal]
  - Multi-organ disorder [Fatal]
  - Cyanosis [Fatal]
  - Respiratory depression [Fatal]
  - Cardiac disorder [Fatal]
  - Accidental poisoning [Fatal]
  - Accidental exposure to product by child [Fatal]
  - Visceral congestion [Fatal]
  - Sudden infant death syndrome [Fatal]
  - Toxicity to various agents [Fatal]
  - Medication error [Fatal]
  - Foetal exposure during pregnancy [Unknown]
  - Product administered to patient of inappropriate age [Unknown]
  - Accidental overdose [Unknown]
  - Nail toxicity [Unknown]
